FAERS Safety Report 5796717-7 (Version None)
Quarter: 2008Q3

REPORT INFORMATION
  Report Type: 
  Country: None (occurrence: None)
  Receive Date: 20080701
  Receipt Date: 20080620
  Transmission Date: 20090109
  Serious: Yes (Hospitalization)
  Sender: FDA-Public Use
  Company Number: US-MERCK-0806USA09135

PATIENT
  Age: 76 Year
  Sex: Female

DRUGS (3)
  1. PRINIVIL [Suspect]
     Indication: BLOOD PRESSURE
     Route: 065
     Dates: end: 20060201
  2. NADOLOL [Concomitant]
     Indication: FAMILIAL TREMOR
     Route: 065
  3. HYDRAZINE [Concomitant]
     Indication: BLOOD PRESSURE
     Route: 065
     Dates: end: 20060201

REACTIONS (6)
  - DEPRESSED LEVEL OF CONSCIOUSNESS [None]
  - DYSPHAGIA [None]
  - HYPOPHAGIA [None]
  - HYPOTENSION [None]
  - LETHARGY [None]
  - MENTAL STATUS CHANGES [None]
